FAERS Safety Report 15318721 (Version 1)
Quarter: 2018Q3

REPORT INFORMATION
  Report Type: Spontaneous
  Country: US (occurrence: US)
  Receive Date: 20180818
  Receipt Date: 20180818
  Transmission Date: 20181010
  Serious: No
  Sender: FDA-Public Use
  Company Number: None

PATIENT
  Age: 32 Year
  Sex: Female
  Weight: 103.5 kg

DRUGS (1)
  1. IMIPRAMINE HCL [Suspect]
     Active Substance: IMIPRAMINE HYDROCHLORIDE
     Indication: ENURESIS
     Dosage: ?          QUANTITY:30 TABLET(S);?
     Route: 048
     Dates: start: 20180818, end: 20180818

REACTIONS (2)
  - Retching [None]
  - Vomiting [None]

NARRATIVE: CASE EVENT DATE: 20180818
